APPROVED DRUG PRODUCT: ABACAVIR SULFATE
Active Ingredient: ABACAVIR SULFATE
Strength: EQ 300MG BASE
Dosage Form/Route: TABLET;ORAL
Application: A091050 | Product #001 | TE Code: AB
Applicant: CHARTWELL RX SCIENCES LLC
Approved: Oct 28, 2016 | RLD: No | RS: No | Type: RX